FAERS Safety Report 22073783 (Version 2)
Quarter: 2023Q1

REPORT INFORMATION
  Report Type: Report from Study
  Country: JP (occurrence: None)
  Receive Date: 20230308
  Receipt Date: 20230313
  Transmission Date: 20230418
  Serious: Yes (Other)
  Sender: FDA-Public Use
  Company Number: JP-ROCHE-3301198

PATIENT
  Age: 58 Year
  Sex: Male
  Weight: 65.7 kg

DRUGS (1)
  1. SATRALIZUMAB [Suspect]
     Active Substance: SATRALIZUMAB
     Indication: Encephalitis autoimmune
     Dosage: LIQUID, ?120 MG/ML?DATE OF LAST DOSE PRIOR TO ADVERSE EVENT: 16/FEB/2023
     Route: 058
     Dates: start: 20230216

REACTIONS (1)
  - Hepatic function abnormal [Recovering/Resolving]

NARRATIVE: CASE EVENT DATE: 20230302
